FAERS Safety Report 8839950 (Version 1)
Quarter: 2012Q4

REPORT INFORMATION
  Report Type: 
  Country: ES (occurrence: ES)
  Receive Date: 20121015
  Receipt Date: 20121015
  Transmission Date: 20130627
  Serious: Yes (Other)
  Sender: FDA-Public Use
  Company Number: ES-JNJFOC-20121006815

PATIENT
  Age: 50 Year
  Sex: Male

DRUGS (2)
  1. PALEXIA [Suspect]
     Indication: POST LAMINECTOMY SYNDROME
     Route: 048
     Dates: start: 2012, end: 2012
  2. SINEMET [Interacting]
     Indication: PARKINSON^S DISEASE
     Route: 065

REACTIONS (4)
  - Neuromuscular blockade [Recovered/Resolved]
  - On and off phenomenon [Recovered/Resolved]
  - Drug interaction [Recovered/Resolved]
  - Drug ineffective [Recovered/Resolved]
